FAERS Safety Report 4392956-0 (Version None)
Quarter: 2004Q3

REPORT INFORMATION
  Report Type: 
  Country: None (occurrence: None)
  Receive Date: 20040702
  Receipt Date: 20040615
  Transmission Date: 20050211
  Serious: Yes (Hospitalization)
  Sender: FDA-Public Use
  Company Number: EWC040639629

PATIENT
  Age: 80 Year
  Sex: Female

DRUGS (5)
  1. FORTEO [Suspect]
     Indication: OSTEOPOROSIS
     Dates: start: 20040605, end: 20040606
  2. ADALAT CRONO (NIFEDIPINE) [Concomitant]
  3. LASIX [Concomitant]
  4. BENEXOL B12 [Concomitant]
  5. NEURONTIN [Concomitant]

REACTIONS (4)
  - BLOOD ALKALINE PHOSPHATASE INCREASED [None]
  - C-REACTIVE PROTEIN INCREASED [None]
  - CYANOSIS [None]
  - DYSPNOEA [None]
